FAERS Safety Report 5402328-5 (Version None)
Quarter: 2007Q3

REPORT INFORMATION
  Report Type: 
  Country: None (occurrence: None)
  Receive Date: 20070801
  Receipt Date: 20070727
  Transmission Date: 20080115
  Serious: Yes (Hospitalization)
  Sender: FDA-Public Use
  Company Number: DE-AVENTIS-200712051DE

PATIENT
  Sex: Female

DRUGS (2)
  1. TELFAST                            /01314201/ [Suspect]
     Route: 048
  2. DIGITOXIN TAB [Suspect]
     Indication: DRUG USE FOR UNKNOWN INDICATION
     Dosage: DOSE: NOT REPORTED

REACTIONS (1)
  - ARRHYTHMIA [None]
